FAERS Safety Report 21707346 (Version 2)
Quarter: 2023Q4

REPORT INFORMATION
  Report Type: Report from Study
  Country: US (occurrence: US)
  Receive Date: 20221209
  Receipt Date: 20231128
  Transmission Date: 20240110
  Serious: No
  Sender: FDA-Public Use
  Company Number: US-BAUSCH-BL-2022-026424

PATIENT
  Age: 52 Year
  Sex: Male

DRUGS (2)
  1. RELISTOR [Suspect]
     Active Substance: METHYLNALTREXONE BROMIDE
     Indication: Constipation
     Dosage: PREFILLED SYRINGE, 12MG/0.6 ML TRAY USING FOR YEARS AND THEN STOPPED
     Route: 058
  2. RELISTOR [Suspect]
     Active Substance: METHYLNALTREXONE BROMIDE
     Dosage: PREFILLED SYRINGE, 12MG/0.6 ML TRAY
     Route: 058
     Dates: start: 2021

REACTIONS (1)
  - Inability to afford medication [Unknown]
